FAERS Safety Report 19155684 (Version 1)
Quarter: 2021Q2

REPORT INFORMATION
  Report Type: Spontaneous
  Country: AU (occurrence: AU)
  Receive Date: 20210419
  Receipt Date: 20210419
  Transmission Date: 20210717
  Serious: Yes (Hospitalization)
  Sender: FDA-Public Use
  Company Number: AU-CELGENEUS-AUS-20210402947

PATIENT
  Sex: Male

DRUGS (2)
  1. REVLIMID [Suspect]
     Active Substance: LENALIDOMIDE
     Dosage: DOSE : CURRENT 10 MG, PREVIOUS 25 MG;     FREQ : DAILY D1?21
     Route: 048
     Dates: start: 202104
  2. REVLIMID [Suspect]
     Active Substance: LENALIDOMIDE
     Indication: PLASMA CELL MYELOMA
     Dosage: DOSE : CURRENT 10 MG, PREVIOUS 25 MG;     FREQ : DAILY D1?21
     Route: 048
     Dates: start: 202012

REACTIONS (1)
  - Unevaluable event [Unknown]
